FAERS Safety Report 10809167 (Version 1)
Quarter: 2015Q1

REPORT INFORMATION
  Report Type: Report from Study
  Country: US (occurrence: US)
  Receive Date: 20150217
  Receipt Date: 20150217
  Transmission Date: 20150721
  Serious: No
  Sender: FDA-Public Use
  Company Number: US-ABBVIE-14K-163-1269058-00

PATIENT
  Age: 44 Year
  Sex: Female

DRUGS (4)
  1. HUMIRA [Suspect]
     Active Substance: ADALIMUMAB
     Indication: PSORIATIC ARTHROPATHY
     Dates: start: 20140702
  2. MUSCLE RELAXANTS [Suspect]
     Active Substance: UNSPECIFIED INGREDIENT
     Indication: MUSCLE SPASMS
     Dates: start: 201407
  3. ALEVE [Suspect]
     Active Substance: NAPROXEN SODIUM
     Indication: MUSCLE SPASMS
     Dates: start: 201407
  4. TYLENOL [Suspect]
     Active Substance: ACETAMINOPHEN
     Indication: MUSCLE SPASMS
     Dates: start: 201407

REACTIONS (3)
  - Inappropriate schedule of drug administration [Unknown]
  - Drug ineffective [Unknown]
  - Muscle spasms [Not Recovered/Not Resolved]

NARRATIVE: CASE EVENT DATE: 201407
